FAERS Safety Report 6222704-0 (Version None)
Quarter: 2009Q2

REPORT INFORMATION
  Report Type: 
  Country: None (occurrence: None)
  Receive Date: 20090609
  Receipt Date: 20090609
  Transmission Date: 20091009
  Serious: Yes (Hospitalization, Other)
  Sender: FDA-Public Use
  Company Number: None

PATIENT
  Sex: Female
  Weight: 86.1834 kg

DRUGS (1)
  1. TORADOL [Suspect]
     Indication: POSTOPERATIVE ANALGESIA
     Dates: start: 20060926, end: 20060927

REACTIONS (8)
  - DYSSTASIA [None]
  - EXOSTOSIS [None]
  - GAIT DISTURBANCE [None]
  - IMPAIRED WORK ABILITY [None]
  - MUSCLE DISORDER [None]
  - MUSCLE TIGHTNESS [None]
  - PAIN IN EXTREMITY [None]
  - TENDONITIS [None]
